FAERS Safety Report 5252458-6 (Version None)
Quarter: 2007Q1

REPORT INFORMATION
  Report Type: 
  Country: None (occurrence: None)
  Receive Date: 20070301
  Receipt Date: 20061116
  Transmission Date: 20070707
  Serious: Yes (Hospitalization)
  Sender: FDA-Public Use
  Company Number: US-BRISTOL-MYERS SQUIBB COMPANY-13581442

PATIENT
  Age: 74 Year
  Sex: Male
  Weight: 118 kg

DRUGS (5)
  1. ERBITUX [Suspect]
     Indication: COLON CANCER
     Route: 042
     Dates: start: 20060707, end: 20060707
  2. CPT-11 [Concomitant]
  3. DECADRON [Concomitant]
     Indication: PREMEDICATION
     Dates: start: 20060707
  4. ALOXI [Concomitant]
     Indication: PREMEDICATION
     Dates: start: 20060707
  5. ZOFRAN [Concomitant]
     Indication: PREMEDICATION
     Dates: start: 20060707

REACTIONS (4)
  - AGITATION [None]
  - DYSPNOEA [None]
  - PALLOR [None]
  - THROAT TIGHTNESS [None]
